FAERS Safety Report 19731568 (Version 1)
Quarter: 2021Q3

REPORT INFORMATION
  Report Type: Other
  Country: CN (occurrence: CN)
  Receive Date: 20210820
  Receipt Date: 20210820
  Transmission Date: 20211014
  Serious: Yes (Other)
  Sender: FDA-Public Use
  Company Number: CN-ROCHE-2892570

PATIENT

DRUGS (1)
  1. TOCILIZUMAB. [Suspect]
     Active Substance: TOCILIZUMAB
     Indication: B-CELL LYMPHOMA
     Route: 065

REACTIONS (7)
  - Cytokine release syndrome [Unknown]
  - Neutrophil count decreased [Unknown]
  - Leukopenia [Unknown]
  - Neutropenia [Unknown]
  - Febrile neutropenia [Unknown]
  - Pneumonia [Unknown]
  - White blood cell count decreased [Unknown]
